FAERS Safety Report 8313549-6 (Version None)
Quarter: 2012Q2

REPORT INFORMATION
  Report Type: 
  Country: None (occurrence: None)
  Receive Date: 20120425
  Receipt Date: 20120425
  Transmission Date: 20120825
  Serious: Yes (Hospitalization)
  Sender: FDA-Public Use
  Company Number: None

PATIENT
  Sex: Female
  Weight: 45.3597 kg

DRUGS (2)
  1. SUBOXONE [Suspect]
     Indication: PAIN
     Dosage: 2-8MG STRIPS DAILY 1AM-1PM ORAL
     Route: 048
     Dates: start: 20110609, end: 20111125
  2. SUBOXONE [Suspect]
     Indication: SURGERY
     Dosage: 2-8MG STRIPS DAILY 1AM-1PM ORAL
     Route: 048
     Dates: start: 20110609, end: 20111125

REACTIONS (4)
  - NAUSEA [None]
  - FUNGAL OESOPHAGITIS [None]
  - WEIGHT DECREASED [None]
  - GASTRIC ULCER [None]
